FAERS Safety Report 4699952-4 (Version None)
Quarter: 2005Q2

REPORT INFORMATION
  Report Type: 
  Country: None (occurrence: None)
  Receive Date: 20050627
  Receipt Date: 20010907
  Transmission Date: 20051028
  Serious: Yes (Hospitalization)
  Sender: FDA-Public Use
  Company Number: FR-BOEHRINGER INGELHEIM PHARMACEUTICALS, INC.-2001-FF-S0598

PATIENT
  Sex: Female
  Weight: 3.3 kg

DRUGS (10)
  1. VIRAMUNE [Suspect]
     Indication: VERTICAL INFECTION TRANSMISSION
     Route: 048
     Dates: start: 20000325, end: 20000325
  2. VIRAMUNE [Suspect]
     Indication: ACQUIRED IMMUNODEFICIENCY SYNDROME
  3. VIRAMUNE [Suspect]
     Route: 015
     Dates: start: 20000128, end: 20000323
  4. RETROVIR [Suspect]
     Indication: VERTICAL INFECTION TRANSMISSION
     Route: 015
     Dates: end: 20000128
  5. RETROVIR [Suspect]
     Route: 048
     Dates: start: 20000323, end: 20000504
  6. RETROVIR [Suspect]
     Route: 015
     Dates: start: 20000323, end: 20000323
  7. ZERIT [Suspect]
     Indication: VERTICAL INFECTION TRANSMISSION
     Route: 015
     Dates: start: 20000128, end: 20000323
  8. EPIVIR [Suspect]
     Indication: VERTICAL INFECTION TRANSMISSION
     Route: 015
     Dates: start: 20000128, end: 20000323
  9. GYNO-PEVARYL [Concomitant]
     Route: 015
  10. LEDERFOLINE [Concomitant]
     Route: 015

REACTIONS (5)
  - ANAEMIA MACROCYTIC [None]
  - HYPERCHOLESTEROLAEMIA [None]
  - HYPERTRIGLYCERIDAEMIA [None]
  - HYPOTONIA NEONATAL [None]
  - NEUTROPENIA [None]
